FAERS Safety Report 7572999-6 (Version None)
Quarter: 2011Q2

REPORT INFORMATION
  Report Type: 
  Country: None (occurrence: None)
  Receive Date: 20110620
  Receipt Date: 20110606
  Transmission Date: 20111010
  Serious: Yes (Other)
  Sender: FDA-Public Use
  Company Number: DE-1186462

PATIENT
  Age: 55 Year
  Sex: Male
  Weight: 85 kg

DRUGS (1)
  1. AZOPT [Suspect]
     Dosage: (1 GTT BID OPHTHALMIC)
     Route: 047
     Dates: start: 20110507

REACTIONS (5)
  - PALPITATIONS [None]
  - EXTRASYSTOLES [None]
  - CONDITION AGGRAVATED [None]
  - VENTRICULAR ARRHYTHMIA [None]
  - DYSPNOEA [None]
